FAERS Safety Report 20652367 (Version 2)
Quarter: 2022Q2

REPORT INFORMATION
  Report Type: Report from Study
  Country: BR (occurrence: BR)
  Receive Date: 20220330
  Receipt Date: 20220622
  Transmission Date: 20220721
  Serious: Yes (Other)
  Sender: FDA-Public Use
  Company Number: BR-JNJFOC-20220360733

PATIENT
  Age: 6 Decade
  Sex: Female
  Weight: 71 kg

DRUGS (6)
  1. SIMPONI [Suspect]
     Active Substance: GOLIMUMAB
     Indication: Psoriatic arthropathy
     Route: 058
     Dates: start: 20210203
  2. SIMPONI [Suspect]
     Active Substance: GOLIMUMAB
     Route: 058
     Dates: start: 20210301
  3. SIMPONI [Suspect]
     Active Substance: GOLIMUMAB
     Route: 058
     Dates: start: 20210512
  4. METHOTREXATE [Concomitant]
     Active Substance: METHOTREXATE
     Dosage: 3 PILLS IN THE MORNING AND 2 AT NIGHT ONE DAY A WEEK
  5. FOLIFOLIN [Concomitant]
     Dosage: 1 PILL
  6. TRAMADOL [Concomitant]
     Active Substance: TRAMADOL

REACTIONS (9)
  - Psoriatic arthropathy [Not Recovered/Not Resolved]
  - Ocular neoplasm [Unknown]
  - Seizure [Unknown]
  - Knee operation [Unknown]
  - Fibromyalgia [Unknown]
  - Spinal pain [Unknown]
  - Blister [Unknown]
  - Body temperature increased [Unknown]
  - Feeling cold [Unknown]

NARRATIVE: CASE EVENT DATE: 20210101
